FAERS Safety Report 24387548 (Version 1)
Quarter: 2024Q4

REPORT INFORMATION
  Report Type: Spontaneous
  Country: US (occurrence: None)
  Receive Date: 20241001
  Receipt Date: 20241001
  Transmission Date: 20250115
  Serious: Yes (Hospitalization)
  Sender: Public
  Company Number: None

PATIENT
  Sex: Female

DRUGS (2)
  1. TAFINLAR [Suspect]
     Active Substance: DABRAFENIB MESYLATE
     Indication: Malignant melanoma
     Dosage: FREQ: TAKE 2 CAPSULES EVERY 12 HOURS BY ORAL ROUTE.?
     Route: 048
     Dates: start: 20180523
  2. OMEPRAZOLE [Concomitant]

REACTIONS (2)
  - Therapy interrupted [None]
  - Product availability issue [None]
